FAERS Safety Report 22013958 (Version 1)
Quarter: 2023Q1

REPORT INFORMATION
  Report Type: Spontaneous
  Country: US (occurrence: US)
  Receive Date: 20230221
  Receipt Date: 20230221
  Transmission Date: 20230417
  Serious: No
  Sender: FDA-Public Use
  Company Number: NORTMC-16403

PATIENT
  Age: 69 Year
  Sex: Male
  Weight: 62.585 kg

DRUGS (1)
  1. OXALIPLATIN [Suspect]
     Active Substance: OXALIPLATIN
     Indication: Colorectal cancer
     Dosage: 145 MG
     Route: 042
     Dates: start: 20221228

REACTIONS (4)
  - Disorientation [Unknown]
  - Pruritus [Unknown]
  - Urticaria [Unknown]
  - Dyspnoea [Unknown]

NARRATIVE: CASE EVENT DATE: 20221228
